FAERS Safety Report 12540875 (Version 1)
Quarter: 2016Q3

REPORT INFORMATION
  Report Type: Not Available
  Country: None (occurrence: US)
  Receive Date: 20160708
  Receipt Date: 20160708
  Transmission Date: 20161109
  Serious: Yes (Hospitalization)
  Sender: FDA-Public Use
  Company Number: US-AKORN-34606

PATIENT
  Age: 64 Year
  Sex: Male

DRUGS (1)
  1. LEVETIRACETAM ORAL SOLUTION [Suspect]
     Active Substance: LEVETIRACETAM

REACTIONS (19)
  - Pyrexia [None]
  - Haematology test abnormal [None]
  - Conjunctivitis [None]
  - Hepatic function abnormal [None]
  - Conjunctival scar [None]
  - Photophobia [None]
  - Retinitis [None]
  - Foreign body sensation in eyes [None]
  - Mouth ulceration [None]
  - Vision blurred [None]
  - Ocular hyperaemia [None]
  - Blepharitis [None]
  - Rash maculo-papular [None]
  - Eosinophilic granulomatosis with polyangiitis [None]
  - Thrombocytopenia [None]
  - Drug reaction with eosinophilia and systemic symptoms [None]
  - Hepatic enzyme increased [None]
  - Corneal exfoliation [None]
  - Hyperbilirubinaemia [None]
